FAERS Safety Report 17195006 (Version 2)
Quarter: 2019Q4

REPORT INFORMATION
  Report Type: Spontaneous
  Country: NL (occurrence: NL)
  Receive Date: 20191224
  Receipt Date: 20191226
  Transmission Date: 20200122
  Serious: No
  Sender: FDA-Public Use
  Company Number: NL-TEVA-2019-NL-1156884

PATIENT
  Age: 75 Year
  Sex: Male
  Weight: 100 kg

DRUGS (3)
  1. CIPROFLOXACLINE [Concomitant]
     Dates: end: 20191030
  2. MORFINE TABLET MET GEREGULEERDE AFGIFTE, 60 MG (MILLIGRAM) [Suspect]
     Active Substance: MORPHINE
     Indication: PAIN
     Dosage: 1X PER 24 HOURS; 60 MG; REGULATED RELEASE TABLET
     Dates: start: 20191021, end: 20191024
  3. CLINDAMYCINE (TOT 30-10) [Concomitant]
     Dates: end: 20191030

REACTIONS (1)
  - Rash [Recovering/Resolving]

NARRATIVE: CASE EVENT DATE: 20191023
